FAERS Safety Report 6349126-6 (Version None)
Quarter: 2009Q3

REPORT INFORMATION
  Report Type: 
  Country: None (occurrence: None)
  Receive Date: 20090911
  Receipt Date: 20090906
  Transmission Date: 20100115
  Serious: Yes (Death, Hospitalization, Other)
  Sender: FDA-Public Use
  Company Number: IN-ELI_LILLY_AND_COMPANY-IN200909001333

PATIENT
  Age: 55 Year
  Sex: Male

DRUGS (5)
  1. XIGRIS [Suspect]
     Indication: SEPSIS
     Dosage: UNK, UNKNOWN
     Route: 042
     Dates: start: 20090904, end: 20090905
  2. DOPAMINE HCL [Concomitant]
     Dosage: UNK, UNKNOWN
     Route: 065
     Dates: start: 20090101, end: 20090904
  3. DOPAMINE HCL [Concomitant]
     Dates: start: 20090101, end: 20090904
  4. NOREPINEPHRINE BITARTRATE [Concomitant]
     Dosage: UNK, UNKNOWN
     Route: 065
     Dates: start: 20090101, end: 20090904
  5. VASOPRESSIN [Concomitant]
     Dosage: UNK, UNKNOWN
     Route: 065
     Dates: start: 20090101

REACTIONS (3)
  - CARDIAC ARREST [None]
  - PLATELET COUNT DECREASED [None]
  - SEPTIC SHOCK [None]
